FAERS Safety Report 18205246 (Version 1)
Quarter: 2020Q3

REPORT INFORMATION
  Report Type: Other
  Country: US (occurrence: US)
  Receive Date: 20200828
  Receipt Date: 20200828
  Transmission Date: 20201103
  Serious: Yes (Other)
  Sender: FDA-Public Use
  Company Number: US-ROCHE-2664501

PATIENT
  Age: 34 Year
  Sex: Female

DRUGS (14)
  1. FOLLITROPIN ALFA [Concomitant]
     Active Substance: FOLLITROPIN
     Dosage: 75?UNIT INJECTIONS TWICE DAILY
  2. CHLORPROMAZINE. [Concomitant]
     Active Substance: CHLORPROMAZINE
  3. CLONAZEPAM. [Suspect]
     Active Substance: CLONAZEPAM
     Indication: BIPOLAR DISORDER
     Dosage: AS NEEDED
     Route: 065
  4. CLONAZEPAM. [Suspect]
     Active Substance: CLONAZEPAM
     Route: 065
  5. QUETIAPINE. [Concomitant]
     Active Substance: QUETIAPINE
     Indication: INSOMNIA
     Dosage: AT BEDTIME
  6. VALPROIC ACID. [Concomitant]
     Active Substance: VALPROIC ACID
  7. OLANZAPINE. [Concomitant]
     Active Substance: OLANZAPINE
  8. CETRORELIX ACETATE [Concomitant]
     Active Substance: CETRORELIX ACETATE
     Dosage: WERE STARTED FOR 4 DAYS
  9. MENOPUR [Concomitant]
     Active Substance: FOLLITROPIN\LUTEINIZING HORMONE
     Dosage: 75 UNITS IN A ONCE?DAILY INJECTION
  10. CHORIONIC GONADOTROPIN [Concomitant]
     Active Substance: CHORIOGONADOTROPIN ALFA
     Dosage: A SINGLE INJECTION OF 10,000 UNITS OF WAS GIVEN ON DAY 12, 36 HOURS BEFORE THE EGG HARVESTING PROCED
  11. LORAZEPAM. [Concomitant]
     Active Substance: LORAZEPAM
  12. DIPHENHYDRAMINE. [Concomitant]
     Active Substance: DIPHENHYDRAMINE
  13. BUPROPION. [Concomitant]
     Active Substance: BUPROPION
  14. LITHIUM. [Concomitant]
     Active Substance: LITHIUM
     Dosage: 300 MG DAILY AND 450 MG QHS

REACTIONS (2)
  - Catatonia [Recovered/Resolved]
  - Delirium [Unknown]
